FAERS Safety Report 8194240-6 (Version None)
Quarter: 2012Q1

REPORT INFORMATION
  Report Type: 
  Country: None (occurrence: None)
  Receive Date: 20120308
  Receipt Date: 20120229
  Transmission Date: 20120608
  Serious: Yes (Hospitalization)
  Sender: FDA-Public Use
  Company Number: DE-ELI_LILLY_AND_COMPANY-DE201203000043

PATIENT
  Age: 79 Year
  Sex: Male
  Weight: 66 kg

DRUGS (4)
  1. EFFIENT [Suspect]
     Indication: ACUTE MYOCARDIAL INFARCTION
     Dosage: 60 MG, LOADING DOSE
     Dates: start: 20110829
  2. ASPIRIN [Concomitant]
     Dosage: 100 MG, MAINTENANCE
  3. ASPIRIN [Concomitant]
     Dosage: 500 MG, LOADING DOSE
  4. EFFIENT [Suspect]
     Dosage: 10 MG, QD

REACTIONS (3)
  - ACUTE MYOCARDIAL INFARCTION [None]
  - IN-STENT CORONARY ARTERY RESTENOSIS [None]
  - CORONARY ARTERY RESTENOSIS [None]
